FAERS Safety Report 23302451 (Version 2)
Quarter: 2024Q1

REPORT INFORMATION
  Report Type: Spontaneous
  Country: US (occurrence: US)
  Receive Date: 20231215
  Receipt Date: 20240123
  Transmission Date: 20240409
  Serious: Yes (Other)
  Sender: FDA-Public Use
  Company Number: US-Calliditas-2023CAL01598

PATIENT
  Age: 45 Year
  Sex: Female
  Weight: 115.45 kg

DRUGS (2)
  1. TARPEYO [Suspect]
     Active Substance: BUDESONIDE
     Indication: Proteinuria
     Dosage: 16 MG (4 MG CAPSULES) ONCE DAILY
     Route: 048
     Dates: start: 20230719
  2. LISINOPRIL [Concomitant]
     Active Substance: LISINOPRIL

REACTIONS (9)
  - Alport^s syndrome [Unknown]
  - Fluid retention [Unknown]
  - Dyspnoea [Unknown]
  - Face oedema [Unknown]
  - Increased appetite [Unknown]
  - Emotional disorder [Unknown]
  - Hypotension [Unknown]
  - Tachycardia [Unknown]
  - Malaise [Unknown]

NARRATIVE: CASE EVENT DATE: 20240111
